FAERS Safety Report 8621626-5 (Version None)
Quarter: 2012Q3

REPORT INFORMATION
  Report Type: 
  Country: None (occurrence: None)
  Receive Date: 20120820
  Receipt Date: 20120820
  Transmission Date: 20120928
  Serious: Yes (Life-Threatening)
  Sender: FDA-Public Use
  Company Number: None

PATIENT
  Age: 73 Year
  Sex: Male
  Weight: 61.2356 kg

DRUGS (1)
  1. CEPHALEXIN [Suspect]
     Indication: ARTHROPOD BITE
     Dosage: 3 TIMES DAILY
     Dates: start: 20120810, end: 20120813

REACTIONS (3)
  - HEADACHE [None]
  - LOSS OF CONSCIOUSNESS [None]
  - INFLUENZA LIKE ILLNESS [None]
